FAERS Safety Report 10156773 (Version 1)
Quarter: 2014Q2

REPORT INFORMATION
  Report Type: Spontaneous
  Country: SI (occurrence: SI)
  Receive Date: 20140507
  Receipt Date: 20140507
  Transmission Date: 20141212
  Serious: Yes (Other)
  Sender: FDA-Public Use
  Company Number: SI-009507513-1405SVN000942

PATIENT
  Age: 63 Year
  Sex: Male

DRUGS (9)
  1. PEGINTERFERON ALFA-2B [Suspect]
     Indication: HEPATITIS C
     Dosage: 120 MICROGRAM/ WEEK
     Dates: start: 201201
  2. PEGINTERFERON ALFA-2B [Suspect]
     Indication: HEPATITIS CHOLESTATIC
     Dosage: FROM WEEK 26: 100 MICROGRAM/ WEEK
     Dates: end: 2012
  3. PEGINTERFERON ALFA-2B [Suspect]
     Indication: HEPATIC FIBROSIS
  4. BOCEPREVIR [Suspect]
     Indication: HEPATITIS C
     Dosage: 800 MG/ TID
     Route: 048
     Dates: start: 2012, end: 2012
  5. BOCEPREVIR [Suspect]
     Indication: HEPATITIS CHOLESTATIC
  6. BOCEPREVIR [Suspect]
     Indication: HEPATIC FIBROSIS
  7. RIBAVIRIN [Suspect]
     Indication: HEPATITIS C
     Dosage: 1200 MG/DAY
     Dates: start: 201201
  8. RIBAVIRIN [Suspect]
     Indication: HEPATITIS CHOLESTATIC
     Dosage: 600 MG/ DAY
     Dates: end: 2012
  9. RIBAVIRIN [Suspect]
     Indication: HEPATIC FIBROSIS

REACTIONS (5)
  - Liver transplant [Unknown]
  - Anaemia [Unknown]
  - Drug ineffective [Unknown]
  - Transplant rejection [Unknown]
  - Transplant failure [Unknown]
